FAERS Safety Report 8453799-1 (Version None)
Quarter: 2012Q2

REPORT INFORMATION
  Report Type: 
  Country: None (occurrence: None)
  Receive Date: 20120620
  Receipt Date: 20120608
  Transmission Date: 20120825
  Serious: Yes (Hospitalization)
  Sender: FDA-Public Use
  Company Number: CO-ELI_LILLY_AND_COMPANY-CO201206003706

PATIENT
  Age: 33 Year
  Sex: Female

DRUGS (2)
  1. MAGNESIUM SULFATE [Concomitant]
     Dosage: UNK, UNKNOWN
  2. HUMALOG [Suspect]
     Dosage: 68 U, QD
     Dates: start: 20120301

REACTIONS (2)
  - MATERNAL EXPOSURE DURING PREGNANCY [None]
  - HIGH RISK PREGNANCY [None]
